FAERS Safety Report 12082464 (Version 3)
Quarter: 2016Q4

REPORT INFORMATION
  Report Type: Spontaneous
  Country: US (occurrence: US)
  Receive Date: 20160217
  Receipt Date: 20161226
  Transmission Date: 20170206
  Serious: No
  Sender: FDA-Public Use
  Company Number: US-CELGENEUS-USA-2016023041

PATIENT
  Sex: Female

DRUGS (3)
  1. REVLIMID [Suspect]
     Active Substance: LENALIDOMIDE
     Indication: PLASMA CELL MYELOMA
     Dosage: MG
     Route: 048
     Dates: start: 201512
  2. REVLIMID [Suspect]
     Active Substance: LENALIDOMIDE
     Dosage: MG
     Route: 048
     Dates: start: 201601
  3. REVLIMID [Suspect]
     Active Substance: LENALIDOMIDE
     Dosage: MG
     Route: 048
     Dates: start: 201602

REACTIONS (6)
  - Balance disorder [Unknown]
  - Dizziness [Unknown]
  - Drug intolerance [Unknown]
  - Constipation [Unknown]
  - Gastrointestinal disorder [Unknown]
  - Nausea [Unknown]
